FAERS Safety Report 5391439-9 (Version None)
Quarter: 2007Q3

REPORT INFORMATION
  Report Type: 
  Country: None (occurrence: None)
  Receive Date: 20070719
  Receipt Date: 20070705
  Transmission Date: 20080115
  Serious: Yes (Death, Other)
  Sender: FDA-Public Use
  Company Number: JP-ROCHE-476630

PATIENT
  Age: 25 Year
  Sex: Female
  Weight: 50 kg

DRUGS (2)
  1. PEGASYS [Suspect]
     Route: 058
     Dates: start: 20040202, end: 20040406
  2. MAGNESIUM OXIDE [Concomitant]
     Route: 048
     Dates: start: 20040202, end: 20040412

REACTIONS (2)
  - HEPATIC FAILURE [None]
  - PLATELET COUNT DECREASED [None]
